FAERS Safety Report 10186264 (Version 2)
Quarter: 2014Q2

REPORT INFORMATION
  Report Type: Spontaneous
  Country: US (occurrence: US)
  Receive Date: 20140521
  Receipt Date: 20140626
  Transmission Date: 20141212
  Serious: Yes (Other)
  Sender: FDA-Public Use
  Company Number: US-PFIZER INC-2014135257

PATIENT
  Age: 59 Year
  Sex: Female
  Weight: 97.07 kg

DRUGS (11)
  1. XELJANZ [Suspect]
     Indication: RHEUMATOID ARTHRITIS
     Dosage: 5 MG, 2X/DAY
     Route: 048
     Dates: start: 20140101, end: 20140415
  2. MELOXICAM [Concomitant]
     Dosage: UNK
  3. BENAZEPRIL [Concomitant]
     Dosage: UNK
  4. TRIAMTERENE [Concomitant]
     Dosage: UNK
  5. TRAMADOL [Concomitant]
     Dosage: UNK
  6. VICODIN [Concomitant]
     Dosage: UNK
  7. PREDNISONE [Concomitant]
     Dosage: UNK
  8. VITAMIN D3 [Concomitant]
     Dosage: UNK
  9. ALFALFA [Concomitant]
     Dosage: UNK
  10. FISH OIL [Concomitant]
     Dosage: UNK
  11. BEE POLLEN [Concomitant]
     Dosage: UNK

REACTIONS (7)
  - Loss of consciousness [Unknown]
  - Presyncope [Unknown]
  - Heart rate decreased [Unknown]
  - White blood cell count increased [Unknown]
  - Infection [Unknown]
  - Nasal congestion [Unknown]
  - Rhinorrhoea [Unknown]
